FAERS Safety Report 26044236 (Version 1)
Quarter: 2025Q4

REPORT INFORMATION
  Report Type: Spontaneous
  Country: US (occurrence: None)
  Receive Date: 20251114
  Receipt Date: 20251114
  Transmission Date: 20260117
  Serious: Yes (Other)
  Sender: UCB
  Company Number: US-UCBSA-2025067061

PATIENT
  Age: 54 Year

DRUGS (1)
  1. BRIVIACT [Suspect]
     Active Substance: BRIVARACETAM
     Indication: Generalised tonic-clonic seizure
     Dosage: 100 MILLIGRAM, 2X/DAY (BID)

REACTIONS (6)
  - Brain injury [Unknown]
  - Seizure [Not Recovered/Not Resolved]
  - Communication disorder [Unknown]
  - Memory impairment [Unknown]
  - Epilepsy [Not Recovered/Not Resolved]
  - Drug dependence [Unknown]
